FAERS Safety Report 20563022 (Version 3)
Quarter: 2024Q2

REPORT INFORMATION
  Report Type: Report from Study
  Country: CA (occurrence: CA)
  Receive Date: 20220307
  Receipt Date: 20240412
  Transmission Date: 20240716
  Serious: Yes (Death, Other)
  Sender: FDA-Public Use
  Company Number: CA-ABBVIE-22K-028-4301784-00

PATIENT
  Age: 83 Year
  Sex: Male
  Weight: 79 kg

DRUGS (4)
  1. LUPRON [Suspect]
     Active Substance: LEUPROLIDE ACETATE
     Indication: Prostate cancer
     Route: 030
     Dates: start: 20200910
  2. LUPRON [Suspect]
     Active Substance: LEUPROLIDE ACETATE
     Route: 030
  3. COVID-19 vaccine [Concomitant]
     Indication: COVID-19 prophylaxis
     Dates: start: 2021, end: 2021
  4. COVID-19 vaccine [Concomitant]
     Indication: COVID-19 prophylaxis
     Dates: start: 202112, end: 202112

REACTIONS (7)
  - Death [Fatal]
  - Acute kidney injury [Unknown]
  - Dehydration [Unknown]
  - Cataract [Unknown]
  - General physical health deterioration [Unknown]
  - Cataract [Recovered/Resolved]
  - Prostate cancer [Not Recovered/Not Resolved]

NARRATIVE: CASE EVENT DATE: 20211123
